FAERS Safety Report 7706639-X (Version None)
Quarter: 2011Q3

REPORT INFORMATION
  Report Type: 
  Country: None (occurrence: None)
  Receive Date: 20110824
  Receipt Date: 20110824
  Transmission Date: 20111222
  Serious: Yes (Hospitalization)
  Sender: FDA-Public Use
  Company Number: TW-JNJFOC-20100805608

PATIENT
  Sex: Male
  Weight: 58 kg

DRUGS (7)
  1. AMMONIA [Suspect]
     Indication: PRODUCT USED FOR UNKNOWN INDICATION
     Route: 065
  2. CONCERTA [Suspect]
     Indication: ATTENTION DEFICIT/HYPERACTIVITY DISORDER
     Route: 048
  3. ROHYPNOL [Suspect]
     Route: 065
     Dates: start: 20100119
  4. CONCERTA [Suspect]
     Route: 048
     Dates: start: 20100119, end: 20100801
  5. CONCERTA [Suspect]
     Route: 048
     Dates: start: 20110101, end: 20110701
  6. CONCERTA [Suspect]
     Route: 048
     Dates: start: 20100901
  7. ROHYPNOL [Suspect]
     Indication: PRODUCT USED FOR UNKNOWN INDICATION
     Route: 065
     Dates: start: 20100901

REACTIONS (2)
  - GRAND MAL CONVULSION [None]
  - POISONING [None]
